FAERS Safety Report 5035775-4 (Version None)
Quarter: 2006Q2

REPORT INFORMATION
  Report Type: 
  Country: None (occurrence: None)
  Receive Date: 20060526
  Receipt Date: 20060328
  Transmission Date: 20061013
  Serious: No
  Sender: FDA-Public Use
  Company Number: FABR-11490

PATIENT
  Age: 51 Year
  Sex: Male

DRUGS (3)
  1. FABRAZYME [Suspect]
     Indication: FABRY'S DISEASE
  2. FABRAZYME [Suspect]
     Indication: FABRY'S DISEASE
     Dates: start: 20040213, end: 20050707
  3. FABRAZYME [Suspect]
     Indication: FABRY'S DISEASE
     Dosage: 1 MG/KG Q2WKS IV
     Route: 042
     Dates: start: 20021120, end: 20040116

REACTIONS (2)
  - DIARRHOEA [None]
  - HEARING IMPAIRED [None]
